FAERS Safety Report 21408076 (Version 2)
Quarter: 2022Q4

REPORT INFORMATION
  Report Type: Report from Study
  Country: US (occurrence: US)
  Receive Date: 20221004
  Receipt Date: 20221006
  Transmission Date: 20230113
  Serious: No
  Sender: FDA-Public Use
  Company Number: US-NOVARTISTESTPH-NVSC2022US224131

PATIENT
  Age: 65 Year
  Sex: Male

DRUGS (1)
  1. ENTRESTO [Suspect]
     Active Substance: SACUBITRIL\VALSARTAN
     Indication: Product used for unknown indication
     Dosage: 0.5 DOSAGE FORM, BID 50 MG, (24/26 MG: SACUBITRIL 24.3 MG, VALSARTAN 25.7 MG), (1/2 TAB)
     Route: 048
     Dates: start: 20221003

REACTIONS (2)
  - Prescribed underdose [Unknown]
  - Wrong technique in product usage process [Unknown]

NARRATIVE: CASE EVENT DATE: 20221003
